FAERS Safety Report 10160849 (Version 1)
Quarter: 2014Q2

REPORT INFORMATION
  Report Type: Spontaneous
  Country: US (occurrence: US)
  Receive Date: 20140508
  Receipt Date: 20140508
  Transmission Date: 20141212
  Serious: No
  Sender: FDA-Public Use
  Company Number: US-B.I. PHARMACEUTICALS,INC./RIDGEFIELD-2014-BI-19481BP

PATIENT
  Age: 72 Year
  Sex: Male
  Weight: 80.73 kg

DRUGS (2)
  1. FLOMAX CAPSULES [Suspect]
     Indication: BENIGN PROSTATIC HYPERPLASIA
     Dosage: 0.4 MG
     Route: 048
     Dates: start: 20140410
  2. AMBIEN [Concomitant]
     Indication: SEDATIVE THERAPY
     Dosage: 5 MG
     Route: 048

REACTIONS (3)
  - Headache [Recovered/Resolved]
  - Dizziness [Recovered/Resolved]
  - Enuresis [Not Recovered/Not Resolved]
